FAERS Safety Report 7757018-0 (Version None)
Quarter: 2011Q3

REPORT INFORMATION
  Report Type: 
  Country: None (occurrence: None)
  Receive Date: 20110916
  Receipt Date: 20110907
  Transmission Date: 20111222
  Serious: Yes (Other)
  Sender: FDA-Public Use
  Company Number: JP-B.I. PHARMACEUTICALS,INC./RIDGEFIELD-2011-BP-21725NB

PATIENT
  Age: 79 Year
  Sex: Male

DRUGS (8)
  1. EPLERENONE [Concomitant]
     Dosage: 25 MG
     Route: 048
     Dates: start: 20110701
  2. LASIX [Concomitant]
     Dosage: 20 MG
     Route: 048
     Dates: start: 20110801
  3. URINORM [Concomitant]
     Dosage: 25 MG
     Route: 048
     Dates: start: 20100701
  4. CARVEDILOL [Concomitant]
     Dosage: 2.5 MG
     Route: 048
     Dates: start: 20110701
  5. PRADAXA [Suspect]
     Dosage: 220 MG
     Route: 048
     Dates: start: 20110701, end: 20110813
  6. ENALAPRIL MALEATE [Concomitant]
     Dosage: 2.5 MG
     Route: 048
     Dates: start: 20110701
  7. URALYT [Concomitant]
     Route: 048
     Dates: start: 20100701
  8. FAMOTIDINE [Concomitant]
     Dosage: 40 MG
     Route: 048
     Dates: start: 20100701

REACTIONS (1)
  - CONJUNCTIVAL HYPERAEMIA [None]
